FAERS Safety Report 5525060-6 (Version None)
Quarter: 2007Q4

REPORT INFORMATION
  Report Type: 
  Country: None (occurrence: None)
  Receive Date: 20071126
  Receipt Date: 20071112
  Transmission Date: 20080405
  Serious: Yes (Other)
  Sender: FDA-Public Use
  Company Number: US-NOVOPROD-269533

PATIENT
  Age: 8 Year
  Sex: Female

DRUGS (1)
  1. NORDITROPINA? [Suspect]
     Indication: DRUG USE FOR UNKNOWN INDICATION
     Dosage: 0.05 MG/KG/D.

REACTIONS (1)
  - HEPATIC NEOPLASM MALIGNANT [None]
